FAERS Safety Report 11701493 (Version 1)
Quarter: 2015Q4

REPORT INFORMATION
  Report Type: Report from Study
  Country: US (occurrence: US)
  Receive Date: 20151105
  Receipt Date: 20151105
  Transmission Date: 20160304
  Serious: Yes (Other)
  Sender: FDA-Public Use
  Company Number: US-GILEAD-2015-0180349

PATIENT
  Age: 79 Year
  Sex: Female

DRUGS (3)
  1. COUMADIN [Concomitant]
     Active Substance: WARFARIN SODIUM
  2. AMBRISENTAN [Suspect]
     Active Substance: AMBRISENTAN
     Indication: PRODUCT USED FOR UNKNOWN INDICATION
     Dosage: 5 MG, QD
     Route: 065
     Dates: start: 20140501
  3. OXYGEN. [Concomitant]
     Active Substance: OXYGEN

REACTIONS (5)
  - Dyspnoea [Unknown]
  - Oxygen saturation decreased [Unknown]
  - Macular degeneration [Unknown]
  - Catheterisation cardiac [Unknown]
  - Glaucoma [Unknown]

NARRATIVE: CASE EVENT DATE: 20150511
